FAERS Safety Report 6066576-6 (Version None)
Quarter: 2009Q1

REPORT INFORMATION
  Report Type: 
  Country: None (occurrence: None)
  Receive Date: 20090205
  Receipt Date: 20090203
  Transmission Date: 20090719
  Serious: Yes (Hospitalization, Other)
  Sender: FDA-Public Use
  Company Number: A0766682A

PATIENT
  Age: 53 Year
  Sex: Male
  Weight: 67 kg

DRUGS (3)
  1. LAPATINIB [Suspect]
     Dosage: 1500MG PER DAY
     Route: 048
     Dates: start: 20081203
  2. CISPLATIN [Suspect]
     Dosage: 100MGM2 CYCLIC
     Route: 042
     Dates: start: 20081210
  3. RADIOTHERAPY [Suspect]
     Dosage: 6GY PER DAY
     Route: 061
     Dates: start: 20081212

REACTIONS (2)
  - NEUTROPENIA [None]
  - PYREXIA [None]
